FAERS Safety Report 18863738 (Version 3)
Quarter: 2021Q1

REPORT INFORMATION
  Report Type: Spontaneous
  Country: JP (occurrence: JP)
  Receive Date: 20210208
  Receipt Date: 20210323
  Transmission Date: 20210420
  Serious: Yes (Hospitalization)
  Sender: FDA-Public Use
  Company Number: JP-DSJP-DSJ-2021-103041

PATIENT
  Age: 27 Year
  Sex: Male
  Weight: 65 kg

DRUGS (3)
  1. LIXIANA OD TABLETS [Suspect]
     Active Substance: EDOXABAN TOSYLATE
     Indication: ATRIAL FIBRILLATION
     Dosage: 60 MG, QD
     Route: 048
     Dates: start: 20190722, end: 20200301
  2. LANSOPRAZOLE. [Concomitant]
     Active Substance: LANSOPRAZOLE
     Dosage: 15 MG, QD
     Route: 048
     Dates: start: 20190722, end: 20200301
  3. TAMBOCOR [Concomitant]
     Active Substance: FLECAINIDE ACETATE
     Indication: ATRIAL FIBRILLATION
     Dosage: 50 MG, BID
     Route: 048
     Dates: start: 20190712, end: 20190912

REACTIONS (2)
  - Pulmonary alveolar haemorrhage [Recovering/Resolving]
  - Pulmonary vein stenosis [Recovering/Resolving]

NARRATIVE: CASE EVENT DATE: 20191222
